FAERS Safety Report 16308056 (Version 2)
Quarter: 2019Q2

REPORT INFORMATION
  Report Type: Spontaneous
  Country: US (occurrence: US)
  Receive Date: 20190514
  Receipt Date: 20190514
  Transmission Date: 20190711
  Serious: Yes (Other)
  Sender: FDA-Public Use
  Company Number: US-CELGENEUS-USA-20190503634

PATIENT
  Age: 82 Year
  Sex: Male
  Weight: 76.27 kg

DRUGS (1)
  1. POMALYST [Suspect]
     Active Substance: POMALIDOMIDE
     Indication: PLASMA CELL MYELOMA
     Dosage: 4 MILLIGRAM
     Route: 048
     Dates: start: 20170925

REACTIONS (6)
  - Diabetes mellitus [Unknown]
  - Dry mouth [Unknown]
  - Neck pain [Unknown]
  - Headache [Unknown]
  - Renal impairment [Unknown]
  - Thirst [Unknown]

NARRATIVE: CASE EVENT DATE: 2019
